FAERS Safety Report 15203962 (Version 1)
Quarter: 2018Q3

REPORT INFORMATION
  Report Type: Spontaneous
  Country: IN (occurrence: IN)
  Receive Date: 20180726
  Receipt Date: 20180726
  Transmission Date: 20181010
  Serious: Yes (Death, Life-Threatening, Other)
  Sender: FDA-Public Use
  Company Number: IN-FRESENIUS KABI-FK201808173

PATIENT
  Age: 42 Year
  Sex: Male

DRUGS (2)
  1. MILRINONE (MANUFACTURER UNKOWN) [Suspect]
     Active Substance: MILRINONE
     Indication: VASOSPASM
     Route: 013
  2. DOPAMINE [Concomitant]
     Active Substance: DOPAMINE\DOPAMINE HYDROCHLORIDE
     Indication: BLOOD PRESSURE MANAGEMENT
     Route: 041

REACTIONS (4)
  - Product use issue [Fatal]
  - Hypotension [Recovered/Resolved]
  - Cardiac arrest [Fatal]
  - Junctional ectopic tachycardia [Fatal]
